FAERS Safety Report 3635791 (Version 3)
Quarter: 2015Q2

REPORT INFORMATION
  Report Type: Spontaneous
  Country: JP (occurrence: JP)
  Receive Date: 20010403
  Receipt Date: 20150428
  Transmission Date: 20150821
  Serious: No
  Sender: FDA-Public Use
  Company Number: PHBS2001JP02407

PATIENT
  Age: 77 Year
  Sex: Female
  Weight: 51 kg

DRUGS (6)
  1. RIZE [Concomitant]
     Active Substance: CLOTIAZEPAM
     Dates: start: 19940129
  2. COMELIAN [Concomitant]
     Active Substance: DILAZEP
     Dates: start: 19940129
  3. DIOVAN [Suspect]
     Active Substance: VALSARTAN
     Route: 048
     Dates: start: 20010206, end: 20010206
  4. CARDENALIN [Concomitant]
     Active Substance: DOXAZOSIN MESYLATE
     Dates: start: 19940129
  5. DIOVAN [Suspect]
     Active Substance: VALSARTAN
     Indication: HYPERTENSION
     Dosage: 80 MG ONCE ONLY
     Route: 048
     Dates: start: 20010206, end: 20010206
  6. CARUNACULIN [Concomitant]
     Dates: start: 19940119

REACTIONS (4)
  - Dyspepsia [Recovered/Resolved]
  - Feeling cold [Recovered/Resolved]
  - Nausea [Recovered/Resolved]
  - Peripheral coldness [Recovered/Resolved]

NARRATIVE: CASE EVENT DATE: 20010206
